FAERS Safety Report 8001573-2 (Version None)
Quarter: 2011Q4

REPORT INFORMATION
  Report Type: 
  Country: None (occurrence: None)
  Receive Date: 20111222
  Receipt Date: 20111213
  Transmission Date: 20120403
  Serious: Yes (Other)
  Sender: FDA-Public Use
  Company Number: US-ROCHE-1007388

PATIENT
  Age: 53 Year
  Sex: Female
  Weight: 69 kg

DRUGS (56)
  1. TARCEVA [Suspect]
     Route: 048
     Dates: start: 20111010
  2. ALIMTA [Concomitant]
     Dates: start: 20110114
  3. BEVACIZUMAB [Concomitant]
     Dates: start: 20110321
  4. BEVACIZUMAB [Concomitant]
     Dates: start: 20110923
  5. CARBOPLATIN [Concomitant]
     Dates: start: 20110226
  6. BENADRYL [Concomitant]
     Indication: PRODUCT USED FOR UNKNOWN INDICATION
     Route: 048
     Dates: start: 20101108
  7. MAGNESIUM OXIDE [Concomitant]
     Indication: BLOOD MAGNESIUM DECREASED
     Route: 048
     Dates: start: 20110711
  8. SENNA S [Concomitant]
     Indication: PRODUCT USED FOR UNKNOWN INDICATION
     Route: 048
     Dates: start: 20110114
  9. TUMS E-X EXTRA STRENGTH [Concomitant]
     Indication: PRODUCT USED FOR UNKNOWN INDICATION
     Route: 048
     Dates: start: 20100311
  10. VICODIN [Concomitant]
     Indication: PAIN
     Route: 048
     Dates: start: 20101210, end: 20111004
  11. ALIMTA [Concomitant]
     Dates: start: 20110502
  12. ALIMTA [Concomitant]
     Dates: start: 20110617
  13. BEVACIZUMAB [Concomitant]
     Dates: start: 20110411
  14. CARBOPLATIN [Concomitant]
     Dates: start: 20110321
  15. CARBOPLATIN [Concomitant]
     Dates: start: 20110411
  16. DEXAMETHASONE [Concomitant]
     Indication: PRODUCT USED FOR UNKNOWN INDICATION
     Dates: start: 20101223, end: 20110924
  17. PROCHLORPERAZINE [Concomitant]
     Indication: NAUSEA
     Route: 048
     Dates: start: 20101223, end: 20110901
  18. ALIMTA [Concomitant]
     Indication: NON-SMALL CELL LUNG CANCER
     Route: 042
     Dates: start: 20101223, end: 20110923
  19. ALIMTA [Concomitant]
     Dates: start: 20110527
  20. BEVACIZUMAB [Concomitant]
     Dates: start: 20110527
  21. BEVACIZUMAB [Concomitant]
     Dates: start: 20110617
  22. CARBOPLATIN [Concomitant]
     Dates: start: 20110114
  23. CARBOPLATIN [Concomitant]
     Dates: start: 20110617
  24. CARBOPLATIN [Concomitant]
     Dates: start: 20110711
  25. NAPROXEN (ALEVE) [Concomitant]
     Indication: PRODUCT USED FOR UNKNOWN INDICATION
     Route: 048
     Dates: start: 20100702
  26. EMERGEN-C [Concomitant]
     Indication: PRODUCT USED FOR UNKNOWN INDICATION
     Route: 048
     Dates: start: 20101108, end: 20110929
  27. EMLA [Concomitant]
     Indication: ANAESTHESIA
     Route: 061
     Dates: start: 20110524, end: 20110923
  28. LEXAPRO [Concomitant]
     Indication: PRODUCT USED FOR UNKNOWN INDICATION
     Route: 048
     Dates: start: 20090122
  29. ANTIBIOTICS NOS [Suspect]
     Indication: PRODUCT USED FOR UNKNOWN INDICATION
  30. LORTAB [Concomitant]
     Indication: PRODUCT USED FOR UNKNOWN INDICATION
  31. BEVACIZUMAB [Concomitant]
     Dates: start: 20110114
  32. CARBOPLATIN [Concomitant]
     Indication: NON-SMALL CELL LUNG CANCER
     Dates: start: 20101223
  33. CARBOPLATIN [Concomitant]
     Dates: start: 20110527
  34. ZOFRAN [Concomitant]
     Indication: NAUSEA
     Route: 048
     Dates: start: 20101223
  35. TARCEVA [Suspect]
     Indication: NON-SMALL CELL LUNG CANCER
     Route: 048
     Dates: start: 20090710, end: 20111007
  36. ALIMTA [Concomitant]
     Dates: start: 20110321
  37. ALIMTA [Concomitant]
     Dates: start: 20110807
  38. ALIMTA [Concomitant]
     Dates: start: 20110923
  39. BEVACIZUMAB [Concomitant]
     Dates: start: 20110502
  40. CARBOPLATIN [Concomitant]
     Dates: start: 20110204
  41. IMODIUM A-D [Concomitant]
     Indication: PRODUCT USED FOR UNKNOWN INDICATION
     Route: 048
     Dates: start: 20090903
  42. ALIMTA [Concomitant]
     Dates: start: 20110204
  43. ALIMTA [Concomitant]
     Dates: start: 20110226
  44. ALIMTA [Concomitant]
     Dates: start: 20110411
  45. BEVACIZUMAB [Concomitant]
     Indication: NON-SMALL CELL LUNG CANCER
     Route: 042
     Dates: start: 20101223
  46. BEVACIZUMAB [Concomitant]
     Dates: start: 20110226
  47. BEVACIZUMAB [Concomitant]
     Dates: start: 20110711
  48. BEVACIZUMAB [Concomitant]
     Dates: start: 20110807
  49. CARBOPLATIN [Concomitant]
     Dates: start: 20110502
  50. CARBOPLATIN [Concomitant]
     Dates: start: 20110807
  51. MULTI-VITAMIN [Concomitant]
     Indication: PRODUCT USED FOR UNKNOWN INDICATION
     Route: 048
     Dates: start: 20090122
  52. SUDAFED 12 HOUR [Concomitant]
     Indication: HYPERSENSITIVITY
     Route: 048
     Dates: start: 20100730
  53. CEFDINIR [Suspect]
     Indication: PRODUCT USED FOR UNKNOWN INDICATION
     Route: 048
     Dates: start: 20111004, end: 20111004
  54. ALIMTA [Concomitant]
     Dates: start: 20110711
  55. BEVACIZUMAB [Concomitant]
     Dates: start: 20110204
  56. NEXIUM [Concomitant]
     Indication: DYSPEPSIA
     Route: 048
     Dates: start: 20081117

REACTIONS (11)
  - PLEURAL EFFUSION [None]
  - CARDIAC MURMUR [None]
  - ALOPECIA [None]
  - MUSCULOSKELETAL PAIN [None]
  - CONSTIPATION [None]
  - FATIGUE [None]
  - ASPARTATE AMINOTRANSFERASE INCREASED [None]
  - ILEUS [None]
  - PULMONARY MICROEMBOLI [None]
  - PERICARDIAL EFFUSION [None]
  - ALANINE AMINOTRANSFERASE INCREASED [None]
